FAERS Safety Report 5869652-3 (Version None)
Quarter: 2008Q3

REPORT INFORMATION
  Report Type: 
  Country: None (occurrence: None)
  Receive Date: 20080904
  Receipt Date: 20040509
  Transmission Date: 20090109
  Serious: No
  Sender: FDA-Public Use
  Company Number: US-BAYER-200830617NA

PATIENT
  Sex: Female

DRUGS (2)
  1. AVELOX [Suspect]
     Indication: DRUG USE FOR UNKNOWN INDICATION
     Route: 048
  2. AVELOX [Suspect]
     Route: 048
     Dates: start: 20040101, end: 20040101

REACTIONS (3)
  - DYSPNOEA [None]
  - LYMPH NODE PAIN [None]
  - LYMPHADENOPATHY [None]
